FAERS Safety Report 19189712 (Version 1)
Quarter: 2021Q2

REPORT INFORMATION
  Report Type: Spontaneous
  Country: GB (occurrence: GB)
  Receive Date: 20210428
  Receipt Date: 20210428
  Transmission Date: 20210717
  Serious: Yes (Hospitalization)
  Sender: FDA-Public Use
  Company Number: GB-PFIZER INC-2021437648

PATIENT
  Age: 77 Year
  Sex: Female
  Weight: 68 kg

DRUGS (5)
  1. MEROPENEM. [Suspect]
     Active Substance: MEROPENEM
     Dosage: UNK
     Dates: start: 20210418
  2. AMLODIPINE [Concomitant]
     Active Substance: AMLODIPINE BESYLATE
     Dosage: 1 DF, 1X/DAY
     Dates: start: 20180516
  3. LEVOTHYROXINE. [Concomitant]
     Active Substance: LEVOTHYROXINE
     Dosage: ONE DAILY ON MON, TUE WED AND THURS ALONG
     Dates: start: 20191004
  4. OMEPRAZOLE. [Concomitant]
     Active Substance: OMEPRAZOLE
     Indication: ILL-DEFINED DISORDER
     Dosage: TAKE ONE DAILY
     Dates: start: 20200930, end: 20210418
  5. CO?AMOXICLAV [AMOXICILLIN;CLAVULANATE POTASSIUM] [Concomitant]
     Active Substance: AMOXICILLIN\CLAVULANATE POTASSIUM
     Dosage: 1 DF, 3X/DAY (TAKE ONE 3 TIMES/DAY FOR 7 DAYS)
     Dates: start: 20210316, end: 20210323

REACTIONS (1)
  - Swollen tongue [Recovered/Resolved]

NARRATIVE: CASE EVENT DATE: 20210418
